FAERS Safety Report 8408611-3 (Version None)
Quarter: 2012Q2

REPORT INFORMATION
  Report Type: 
  Country: None (occurrence: None)
  Receive Date: 20120604
  Receipt Date: 20120130
  Transmission Date: 20120825
  Serious: No
  Sender: FDA-Public Use
  Company Number: US-NOVEN-12US004018

PATIENT
  Sex: Female
  Weight: 24.943 kg

DRUGS (4)
  1. IPRATROPIUM BROMIDE [Concomitant]
     Indication: ASTHMA
     Dosage: 1 VIAL, BID
     Route: 055
  2. XOPENEX [Concomitant]
     Indication: ASTHMA
     Dosage: 1.25 MG, BID
     Route: 055
  3. DAYTRANA [Suspect]
     Indication: ATTENTION DEFICIT/HYPERACTIVITY DISORDER
     Dosage: 10 MG, QD
     Route: 062
     Dates: start: 20100101
  4. FORADIL [Concomitant]
     Indication: ASTHMA
     Dosage: 12 UG, BID
     Route: 055

REACTIONS (5)
  - WRONG TECHNIQUE IN DRUG USAGE PROCESS [None]
  - DRUG DOSE OMISSION [None]
  - PRODUCT QUALITY ISSUE [None]
  - DISTURBANCE IN SOCIAL BEHAVIOUR [None]
  - INCORRECT DRUG ADMINISTRATION DURATION [None]
